FAERS Safety Report 7546732-8 (Version None)
Quarter: 2011Q2

REPORT INFORMATION
  Report Type: 
  Country: None (occurrence: None)
  Receive Date: 20110614
  Receipt Date: 20110606
  Transmission Date: 20111010
  Serious: Yes (Other)
  Sender: FDA-Public Use
  Company Number: A0927156A

PATIENT
  Age: 49 Year
  Sex: Male

DRUGS (2)
  1. VENTOLIN HFA [Concomitant]
  2. ADVAIR DISKUS 100/50 [Suspect]
     Indication: ASTHMA
     Dosage: 1PUFF TWICE PER DAY
     Route: 055
     Dates: start: 20090928

REACTIONS (3)
  - DYSPNOEA [None]
  - ASTHMA [None]
  - PRODUCT QUALITY ISSUE [None]
